FAERS Safety Report 26171880 (Version 1)
Quarter: 2025Q4

REPORT INFORMATION
  Report Type: Spontaneous
  Country: CN (occurrence: CN)
  Receive Date: 20251217
  Receipt Date: 20251217
  Transmission Date: 20260119
  Serious: Yes (Hospitalization, Other)
  Sender: JOHNSON AND JOHNSON
  Company Number: CN-BAYER-2025A163854

PATIENT
  Age: 76 Year
  Sex: Female
  Weight: 69 kg

DRUGS (3)
  1. XARELTO [Suspect]
     Active Substance: RIVAROXABAN
     Indication: Atrial fibrillation
     Dosage: 10 MG, QD
     Route: 048
     Dates: start: 20230901
  2. FUROSEMIDE [Suspect]
     Active Substance: FUROSEMIDE
     Indication: Cardiac failure chronic
     Dosage: 20 MG, QOD
     Route: 048
     Dates: start: 20230901, end: 20251207
  3. FUROSEMIDE [Suspect]
     Active Substance: FUROSEMIDE
     Dosage: 20 MG, BIW
     Route: 048
     Dates: start: 20251208

REACTIONS (11)
  - Alanine aminotransferase increased [Recovering/Resolving]
  - Aspartate aminotransferase increased [Recovering/Resolving]
  - Interstitial lung disease [Unknown]
  - Lacunar infarction [Unknown]
  - Dementia Alzheimer^s type [Unknown]
  - Cerebrovascular insufficiency [Unknown]
  - Dermatomyositis [Unknown]
  - Prescribed underdose [Unknown]
  - Underdose [Unknown]
  - Chronic obstructive pulmonary disease [Unknown]
  - Cognitive disorder [Unknown]

NARRATIVE: CASE EVENT DATE: 20230901
